FAERS Safety Report 4392307-1 (Version None)
Quarter: 2004Q3

REPORT INFORMATION
  Report Type: 
  Country: None (occurrence: None)
  Receive Date: 20040702
  Receipt Date: 20040305
  Transmission Date: 20050211
  Serious: Yes (Other)
  Sender: FDA-Public Use
  Company Number: 2004UW04121

PATIENT
  Age: 80 Year
  Sex: Female
  Weight: 68.4932 kg

DRUGS (5)
  1. CRESTOR [Suspect]
     Indication: BLOOD CHOLESTEROL INCREASED
     Dates: start: 20040302
  2. COUMADIN [Concomitant]
  3. AVALIDE [Concomitant]
  4. ZANTAC [Concomitant]
  5. MULTIVITAMIN [Concomitant]

REACTIONS (1)
  - BURNING SENSATION [None]
